FAERS Safety Report 9281711 (Version 1)
Quarter: 2013Q2

REPORT INFORMATION
  Report Type: Spontaneous
  Country: FR (occurrence: FR)
  Receive Date: 20130509
  Receipt Date: 20130509
  Transmission Date: 20140414
  Serious: Yes (Life-Threatening)
  Sender: FDA-Public Use
  Company Number: FR-ROCHE-1221869

PATIENT
  Age: 58 Year
  Sex: Female

DRUGS (1)
  1. ROCEPHINE [Suspect]
     Indication: PYELONEPHRITIS
     Route: 042
     Dates: start: 20130204, end: 20130204

REACTIONS (3)
  - Rash [Recovered/Resolved]
  - Pruritus [Recovered/Resolved]
  - Blood pressure decreased [Recovered/Resolved]
